FAERS Safety Report 8334049-3 (Version None)
Quarter: 2012Q2

REPORT INFORMATION
  Report Type: 
  Country: None (occurrence: None)
  Receive Date: 20120503
  Receipt Date: 20110215
  Transmission Date: 20120825
  Serious: No
  Sender: FDA-Public Use
  Company Number: US-TEVA-2011000750

PATIENT
  Sex: Female
  Weight: 81.72 kg

DRUGS (1)
  1. NUVIGIL [Suspect]
     Indication: ANKYLOSING SPONDYLITIS
     Dosage: 150 MILLIGRAM;
     Route: 048
     Dates: start: 20110215

REACTIONS (2)
  - NAUSEA [None]
  - HEADACHE [None]
